FAERS Safety Report 19944222 (Version 1)
Quarter: 2021Q4

REPORT INFORMATION
  Report Type: Spontaneous
  Country: US (occurrence: US)
  Receive Date: 20211011
  Receipt Date: 20211011
  Transmission Date: 20220303
  Serious: No
  Sender: FDA-Public Use
  Company Number: US-JUBILANT CADISTA PHARMACEUTICALS-2021JUB00144

PATIENT
  Age: 68 Year
  Sex: Female

DRUGS (2)
  1. PREDNISONE [Suspect]
     Active Substance: PREDNISONE
     Indication: Lung disorder
     Dosage: UNK
     Dates: start: 1993
  2. SYNTHROID [Concomitant]
     Active Substance: LEVOTHYROXINE SODIUM

REACTIONS (6)
  - Lactose intolerance [Unknown]
  - Malaise [Unknown]
  - Reaction to excipient [Unknown]
  - Diarrhoea [Unknown]
  - Off label use [Recovered/Resolved]
  - Abdominal distension [Unknown]
